FAERS Safety Report 14707976 (Version 2)
Quarter: 2018Q2

REPORT INFORMATION
  Report Type: Spontaneous
  Country: US (occurrence: US)
  Receive Date: 20180403
  Receipt Date: 20180404
  Transmission Date: 20180711
  Serious: No
  Sender: FDA-Public Use
  Company Number: US-PFIZER INC-2018133877

PATIENT
  Age: 62 Year
  Sex: Male

DRUGS (6)
  1. GABAPENTIN. [Suspect]
     Active Substance: GABAPENTIN
     Indication: NEURALGIA
     Dosage: 800 MG, 3X/DAY
     Route: 048
  2. PREDNISONE. [Concomitant]
     Active Substance: PREDNISONE
     Indication: MUSCULOSKELETAL PAIN
     Dosage: 10 MG, 1X/DAY
     Route: 048
  3. FLEXERIL [Concomitant]
     Active Substance: CYCLOBENZAPRINE HYDROCHLORIDE
     Indication: MUSCLE SPASMS
     Dosage: 10 MG, 1X/DAY (AT BEDTIME)
     Route: 048
  4. FLEXERIL [Concomitant]
     Active Substance: CYCLOBENZAPRINE HYDROCHLORIDE
     Indication: MUSCLE RELAXANT THERAPY
  5. FLEXERIL [Concomitant]
     Active Substance: CYCLOBENZAPRINE HYDROCHLORIDE
     Indication: PAIN
  6. LISINOPRIL. [Concomitant]
     Active Substance: LISINOPRIL
     Indication: BLOOD PRESSURE MANAGEMENT
     Dosage: 40 MG, 1X/DAY
     Route: 048

REACTIONS (4)
  - Product use in unapproved indication [Unknown]
  - Poor quality drug administered [Unknown]
  - Product solubility abnormal [Unknown]
  - Depression [Recovered/Resolved]
